FAERS Safety Report 23246814 (Version 4)
Quarter: 2024Q1

REPORT INFORMATION
  Report Type: Spontaneous
  Country: US (occurrence: US)
  Receive Date: 20231130
  Receipt Date: 20240323
  Transmission Date: 20240410
  Serious: Yes (Hospitalization, Other)
  Sender: FDA-Public Use
  Company Number: US-ACORDA-ACO_176931_2023

PATIENT
  Age: 73 Year
  Sex: Male

DRUGS (2)
  1. INBRIJA [Suspect]
     Active Substance: LEVODOPA
     Indication: On and off phenomenon
     Dosage: 2 DOSAGE FORM (TWO 42 MG CAPSULES), PRN
  2. SINEMET [Concomitant]
     Active Substance: CARBIDOPA\LEVODOPA
     Indication: Product used for unknown indication
     Dosage: UNK
     Route: 065

REACTIONS (4)
  - Aspiration tracheal abnormal [Unknown]
  - Upper limb fracture [Unknown]
  - Fall [Not Recovered/Not Resolved]
  - Intentional underdose [Unknown]

NARRATIVE: CASE EVENT DATE: 20231113
